FAERS Safety Report 7063285-1 (Version None)
Quarter: 2010Q4

REPORT INFORMATION
  Report Type: 
  Country: None (occurrence: None)
  Receive Date: 20101026
  Receipt Date: 20100602
  Transmission Date: 20110411
  Serious: No
  Sender: FDA-Public Use
  Company Number: US-PFIZER INC-2010069854

PATIENT
  Sex: Male
  Weight: 95.254 kg

DRUGS (6)
  1. LIPITOR [Suspect]
     Indication: BLOOD CHOLESTEROL
     Dosage: 80 MG, DAILY
  2. LIPITOR [Suspect]
     Dosage: 40 MG, UNK
  3. TRICOR [Suspect]
     Indication: BLOOD CHOLESTEROL
     Dosage: UNK
  4. TRICOR [Suspect]
     Dosage: 48 MG, UNK
  5. METFORMIN [Concomitant]
     Dosage: UNK
  6. GLYBURIDE [Concomitant]
     Dosage: UNK

REACTIONS (2)
  - MUSCULOSKELETAL DISCOMFORT [None]
  - NERVE COMPRESSION [None]
